FAERS Safety Report 15451936 (Version 1)
Quarter: 2018Q4

REPORT INFORMATION
  Report Type: Spontaneous
  Country: IT (occurrence: IT)
  Receive Date: 20181001
  Receipt Date: 20181001
  Transmission Date: 20190204
  Serious: Yes (Hospitalization)
  Sender: FDA-Public Use
  Company Number: IT-JUBILANT CADISTA PHARMACEUTICALS-2018JUB00382

PATIENT
  Age: 80 Year
  Sex: Male

DRUGS (2)
  1. BECLOMETASON [Concomitant]
     Active Substance: BECLOMETHASONE DIPROPIONATE
     Indication: CHRONIC OBSTRUCTIVE PULMONARY DISEASE
     Dosage: 168 ?G, 1X/DAY
     Dates: start: 201704
  2. LEVOFLOXACIN. [Suspect]
     Active Substance: LEVOFLOXACIN
     Indication: CHRONIC OBSTRUCTIVE PULMONARY DISEASE
     Dosage: 1500 MG, 1X/DAY
     Route: 065
     Dates: start: 201704

REACTIONS (2)
  - Chorea [Recovered/Resolved]
  - Ballismus [Recovered/Resolved]

NARRATIVE: CASE EVENT DATE: 201704
